FAERS Safety Report 9376525 (Version 2)
Quarter: 2013Q3

REPORT INFORMATION
  Report Type: Spontaneous
  Country: US (occurrence: US)
  Receive Date: 20130701
  Receipt Date: 20130809
  Transmission Date: 20140515
  Serious: No
  Sender: FDA-Public Use
  Company Number: US-PFIZER INC-2013192456

PATIENT
  Age: 77 Year
  Sex: Male

DRUGS (1)
  1. SUTENT [Suspect]
     Indication: RENAL CANCER
     Dosage: 50 MG, DAILY, FOR 4 WEEKS OUT OF 6 WEEK CYCLE
     Dates: start: 20130124

REACTIONS (4)
  - Hyperaesthesia [Unknown]
  - Functional gastrointestinal disorder [Unknown]
  - Rhinorrhoea [Unknown]
  - Ear disorder [Unknown]
